FAERS Safety Report 10249419 (Version 1)
Quarter: 2014Q2

REPORT INFORMATION
  Report Type: Spontaneous
  Country: US (occurrence: None)
  Receive Date: 20140619
  Receipt Date: 20140619
  Transmission Date: 20141212
  Serious: Yes (Hospitalization)
  Sender: FDA-Public Use
  Company Number: None

PATIENT
  Age: 61 Year
  Sex: Female
  Weight: 77.02 kg

DRUGS (13)
  1. ERLOTINIB [Suspect]
     Indication: NON-SMALL CELL LUNG CANCER
     Route: 048
     Dates: start: 20140611, end: 20140614
  2. MLN8237 [Suspect]
     Indication: NON-SMALL CELL LUNG CANCER
     Route: 048
     Dates: start: 20140611, end: 20140614
  3. LACTULOSE [Concomitant]
  4. OXYCODONE [Concomitant]
  5. OXYCONTIN [Concomitant]
  6. PROAIR [Concomitant]
  7. SYMBICORT [Concomitant]
  8. COZAAR [Concomitant]
  9. ZOFRAN [Concomitant]
  10. OCEAN NASAL SPRAY [Concomitant]
  11. XANAX [Concomitant]
  12. ZOCOR [Concomitant]
  13. ALBUTEROL [Concomitant]

REACTIONS (2)
  - Deep vein thrombosis [None]
  - Blood creatinine increased [None]
